FAERS Safety Report 9462424 (Version 1)
Quarter: 2013Q3

REPORT INFORMATION
  Report Type: Spontaneous
  Country: NL (occurrence: NL)
  Receive Date: 20130816
  Receipt Date: 20130816
  Transmission Date: 20140515
  Serious: Yes (Death)
  Sender: FDA-Public Use
  Company Number: PHHY2013NL087047

PATIENT
  Age: 61 Year
  Sex: Female

DRUGS (2)
  1. AZITHROMYCIN [Suspect]
     Indication: PYREXIA
  2. THIAMAZOLE [Concomitant]
     Indication: BASEDOW^S DISEASE

REACTIONS (5)
  - Agranulocytosis [Fatal]
  - Neutropenia [Fatal]
  - Cardiac arrest [Fatal]
  - Pyrexia [Unknown]
  - Drug ineffective [Unknown]
